FAERS Safety Report 11087561 (Version 1)
Quarter: 2015Q2

REPORT INFORMATION
  Report Type: Spontaneous
  Country: IT (occurrence: IT)
  Receive Date: 20150504
  Receipt Date: 20150504
  Transmission Date: 20150821
  Serious: Yes (Other)
  Sender: FDA-Public Use
  Company Number: IT-ACTAVIS-2015-08844

PATIENT
  Age: 77 Year
  Sex: Female

DRUGS (2)
  1. OXALIPLATIN (UNKNOWN) [Suspect]
     Active Substance: OXALIPLATIN
     Indication: RECTAL NEOPLASM
     Dosage: 130 MG/M2 MONTHLY
     Route: 042
     Dates: start: 20150413, end: 20150413
  2. CAPECITABINE. [Suspect]
     Active Substance: CAPECITABINE
     Indication: RECTAL NEOPLASM
     Dosage: 1500 MG, UNKNOWN
     Route: 058
     Dates: start: 20150323, end: 20150405

REACTIONS (2)
  - Salivary hypersecretion [Recovered/Resolved with Sequelae]
  - Muscle contracture [Recovered/Resolved with Sequelae]

NARRATIVE: CASE EVENT DATE: 20150413
